FAERS Safety Report 5337014-3 (Version None)
Quarter: 2007Q2

REPORT INFORMATION
  Report Type: 
  Country: None (occurrence: None)
  Receive Date: 20070523
  Receipt Date: 20070510
  Transmission Date: 20071010
  Serious: Yes (Other)
  Sender: FDA-Public Use
  Company Number: GXKR2007GB04197

PATIENT
  Age: 85 Year
  Sex: Female

DRUGS (9)
  1. SIMVASTATIN [Suspect]
     Indication: BLOOD CHOLESTEROL INCREASED
     Dosage: 40 MG, QD, ORAL
     Route: 048
  2. NUTRITION SUPPLEMENTS(NUTRITION SUPPLEMENTS) [Suspect]
     Dosage: ORAL
     Route: 048
     Dates: start: 20070419, end: 20070422
  3. ISOSORBIDE MONONITRATE [Concomitant]
  4. LOSARTAN POTASSIUM [Concomitant]
  5. METFORMIN HCL [Concomitant]
  6. OVESTIN (ESTRIOL) [Concomitant]
  7. RANITIDINE [Concomitant]
  8. SOLIFENACIN (SOLIFENACIN) [Concomitant]
  9. ANTIOBIOTICS (NO INGREDIENTS/SUBSTANCES) [Concomitant]

REACTIONS (3)
  - DRUG INTERACTION [None]
  - FOOD INTERACTION [None]
  - PAIN IN EXTREMITY [None]
